FAERS Safety Report 21475749 (Version 1)
Quarter: 2022Q4

REPORT INFORMATION
  Report Type: Spontaneous
  Country: IN (occurrence: US)
  Receive Date: 20221019
  Receipt Date: 20221019
  Transmission Date: 20230113
  Serious: Yes (Other)
  Sender: FDA-Public Use
  Company Number: IN-ROCHE-3200496

PATIENT
  Sex: Female

DRUGS (2)
  1. CAPECITABINE [Suspect]
     Active Substance: CAPECITABINE
     Indication: Product used for unknown indication
     Route: 048
  2. TUKYSA [Suspect]
     Active Substance: TUCATINIB
     Indication: Product used for unknown indication
     Route: 065

REACTIONS (7)
  - Tumour excision [Unknown]
  - Dysstasia [Unknown]
  - Coordination abnormal [Unknown]
  - Ill-defined disorder [Unknown]
  - Agitation [Unknown]
  - Depression [Unknown]
  - Gait inability [Unknown]
